FAERS Safety Report 7494510-0 (Version None)
Quarter: 2011Q2

REPORT INFORMATION
  Report Type: 
  Country: None (occurrence: None)
  Receive Date: 20110520
  Receipt Date: 20110506
  Transmission Date: 20111010
  Serious: Yes (Other)
  Sender: FDA-Public Use
  Company Number: PHHY2011FR11164

PATIENT
  Sex: Male

DRUGS (2)
  1. RASILEZ [Suspect]
     Indication: HYPERTENSION
     Dosage: 150 MG, DAILY
     Dates: start: 20110101, end: 20110201
  2. ALLOPURINOL [Concomitant]
     Dosage: 300 MG, QD

REACTIONS (2)
  - DYSPNOEA [None]
  - COUGH [None]
